FAERS Safety Report 7236788-4 (Version None)
Quarter: 2011Q1

REPORT INFORMATION
  Report Type: 
  Country: None (occurrence: None)
  Receive Date: 20110120
  Receipt Date: 20110117
  Transmission Date: 20110831
  Serious: Yes (Hospitalization)
  Sender: FDA-Public Use
  Company Number: GB-ABBOTT-11P-167-0698117-00

PATIENT
  Age: 62 Year
  Sex: Male

DRUGS (2)
  1. STEROIDS [Concomitant]
     Indication: PRODUCT USED FOR UNKNOWN INDICATION
  2. HUMIRA [Suspect]
     Indication: RHEUMATOID ARTHRITIS

REACTIONS (3)
  - GASTROINTESTINAL NECROSIS [None]
  - ABDOMINAL PAIN [None]
  - DIARRHOEA [None]
